FAERS Safety Report 8231388-1 (Version None)
Quarter: 2012Q1

REPORT INFORMATION
  Report Type: 
  Country: None (occurrence: None)
  Receive Date: 20120323
  Receipt Date: 20120315
  Transmission Date: 20120608
  Serious: Yes (Hospitalization, Other)
  Sender: FDA-Public Use
  Company Number: US-AMGEN-USASP2012017201

PATIENT
  Age: 35 Year
  Sex: Female

DRUGS (5)
  1. VITAMINS                           /90003601/ [Concomitant]
     Dosage: UNK UNK, QD
     Route: 048
  2. ENBREL [Suspect]
     Indication: RHEUMATOID ARTHRITIS
     Dosage: 50 MG, QWK
     Dates: start: 20080101, end: 20110501
  3. PREDNISONE TAB [Concomitant]
     Dosage: 10 MG, QD
  4. PREDNISONE TAB [Concomitant]
     Dosage: 5 MG, QD
     Route: 048
  5. SULFASALAZINE [Concomitant]

REACTIONS (1)
  - PREMATURE DELIVERY [None]
